FAERS Safety Report 8263263-0 (Version None)
Quarter: 2012Q2

REPORT INFORMATION
  Report Type: 
  Country: None (occurrence: None)
  Receive Date: 20120405
  Receipt Date: 20120402
  Transmission Date: 20120825
  Serious: Yes (Other)
  Sender: FDA-Public Use
  Company Number: DZ-PFIZER INC-2012060397

PATIENT
  Age: 29 Year
  Sex: Female

DRUGS (5)
  1. VORICONAZOLE [Suspect]
     Indication: OROPHARYNGEAL CANDIDIASIS
     Dosage: 140 MG, 2X/DAY
     Dates: start: 20120222, end: 20120303
  2. VORICONAZOLE [Suspect]
     Indication: EAR INFECTION FUNGAL
  3. ALBUMINE ^LFB^ [Concomitant]
     Indication: HYPOALBUMINAEMIA
  4. OMEPRAZOLE [Concomitant]
     Indication: PROPHYLAXIS
     Dosage: UNK
     Dates: end: 20120201
  5. LOVENOX [Concomitant]
     Indication: PROPHYLAXIS

REACTIONS (5)
  - APLASIA [None]
  - HAEMOGLOBIN DECREASED [None]
  - SKIN HAEMORRHAGE [None]
  - BLOOD POTASSIUM DECREASED [None]
  - ABDOMINAL PAIN [None]
